FAERS Safety Report 8104820-1 (Version None)
Quarter: 2012Q1

REPORT INFORMATION
  Report Type: 
  Country: None (occurrence: None)
  Receive Date: 20120130
  Receipt Date: 20120120
  Transmission Date: 20120608
  Serious: Yes (Hospitalization)
  Sender: FDA-Public Use
  Company Number: DSM-2012-00009

PATIENT
  Age: 84 Year
  Sex: Male
  Weight: 83 kg

DRUGS (5)
  1. SEVIKAR HCT (TABLET) [Suspect]
     Indication: HYPERTENSION
     Dosage: 40/10/12.5MG,ORAL
     Route: 048
     Dates: start: 20111206
  2. CLOPIDOGREL [Concomitant]
  3. ASPIRIN [Concomitant]
  4. MOXONIDIN (MOXONIDINE) [Concomitant]
  5. HYDROCHLOROTHIAZIDE [Concomitant]

REACTIONS (1)
  - CEREBROVASCULAR ACCIDENT [None]
